FAERS Safety Report 15233322 (Version 1)
Quarter: 2018Q3

REPORT INFORMATION
  Report Type: Spontaneous
  Country: US (occurrence: US)
  Receive Date: 20180709
  Receipt Date: 20180709
  Transmission Date: 20181010
  Serious: No
  Sender: FDA-Public Use
  Company Number: None

PATIENT
  Age: 64 Year
  Sex: Female

DRUGS (13)
  1. OLOPATADINE. [Concomitant]
     Active Substance: OLOPATADINE
  2. AMOXICILLIN. [Concomitant]
     Active Substance: AMOXICILLIN
  3. LANTUS [Concomitant]
     Active Substance: INSULIN GLARGINE
  4. COSENTYX [Suspect]
     Active Substance: SECUKINUMAB
     Indication: PSORIASIS
     Dosage: ?          OTHER FREQUENCY:EVERY 4 WEEKS;?
     Route: 058
     Dates: start: 20170906
  5. FLUTICASONE. [Concomitant]
     Active Substance: FLUTICASONE
  6. CELECOXIB. [Concomitant]
     Active Substance: CELECOXIB
  7. MORPHINE [Concomitant]
     Active Substance: MORPHINE
  8. IRBESARTAN. [Concomitant]
     Active Substance: IRBESARTAN
  9. OXYCODONE [Concomitant]
     Active Substance: OXYCODONE
  10. METOPROL SUC [Concomitant]
  11. LEVOTHYROXINE. [Concomitant]
     Active Substance: LEVOTHYROXINE
  12. MONTELUKAST [Concomitant]
     Active Substance: MONTELUKAST SODIUM
  13. VICTOZA [Concomitant]
     Active Substance: LIRAGLUTIDE

REACTIONS (2)
  - Chronic obstructive pulmonary disease [None]
  - Dyspnoea [None]

NARRATIVE: CASE EVENT DATE: 20180709
